FAERS Safety Report 13384747 (Version 1)
Quarter: 2017Q1

REPORT INFORMATION
  Report Type: Spontaneous
  Country: US (occurrence: US)
  Receive Date: 20170329
  Receipt Date: 20170329
  Transmission Date: 20170429
  Serious: Yes (Other)
  Sender: FDA-Public Use
  Company Number: None

PATIENT
  Age: 50 Year
  Sex: Male
  Weight: 90 kg

DRUGS (11)
  1. PHILIPS PROBIOTIC COLAN SUPPORT [Concomitant]
  2. CYCLOSET [Concomitant]
     Active Substance: BROMOCRIPTINE MESYLATE
  3. BAYER LOW DOSE ASPIRIN [Concomitant]
  4. CONTRAVE [Suspect]
     Active Substance: BUPROPION HYDROCHLORIDE\NALTREXONE HYDROCHLORIDE
     Indication: WEIGHT CONTROL
     Dosage: ?          QUANTITY:1 CAPSULE(S);?
     Route: 048
     Dates: start: 20170122, end: 20170122
  5. TRESIBA [Concomitant]
     Active Substance: INSULIN DEGLUDEC
  6. VITAMIN D [Concomitant]
     Active Substance: CHOLECALCIFEROL
  7. VYVANSE [Concomitant]
     Active Substance: LISDEXAMFETAMINE DIMESYLATE
  8. ONCE DAILY VITAMIN [Concomitant]
  9. MELOXICAM. [Concomitant]
     Active Substance: MELOXICAM
  10. INVOKANA [Concomitant]
     Active Substance: CANAGLIFLOZIN
  11. METFORMIN [Concomitant]
     Active Substance: METFORMIN HYDROCHLORIDE

REACTIONS (5)
  - Anhedonia [None]
  - Self-injurious ideation [None]
  - Emotional distress [None]
  - Feeling abnormal [None]
  - Fear [None]

NARRATIVE: CASE EVENT DATE: 20170122
